FAERS Safety Report 5853421-4 (Version None)
Quarter: 2008Q3

REPORT INFORMATION
  Report Type: 
  Country: None (occurrence: None)
  Receive Date: 20080820
  Receipt Date: 20080806
  Transmission Date: 20090109
  Serious: Yes (Other)
  Sender: FDA-Public Use
  Company Number: 1000000530

PATIENT
  Age: 19 Year
  Sex: Female
  Weight: 140 kg

DRUGS (2)
  1. CITALOPRAM HYDROBROMIDE [Suspect]
     Indication: ANXIETY
     Dosage: 40-60 MG DAILY
     Dates: start: 20050801
  2. CITALOPRAM HYDROBROMIDE [Suspect]
     Indication: ANXIETY
     Dates: end: 20060601

REACTIONS (4)
  - CONFUSIONAL STATE [None]
  - DEPRESSED MOOD [None]
  - FEELING GUILTY [None]
  - HYPERSEXUALITY [None]
